FAERS Safety Report 21637613 (Version 5)
Quarter: 2023Q1

REPORT INFORMATION
  Report Type: Report from Study
  Country: DK (occurrence: DK)
  Receive Date: 20221124
  Receipt Date: 20230330
  Transmission Date: 20230418
  Serious: Yes (Death, Hospitalization, Other)
  Sender: FDA-Public Use
  Company Number: DK-STADA-262223

PATIENT
  Age: 71 Year
  Sex: Male

DRUGS (26)
  1. ENZALUTAMIDE [Suspect]
     Active Substance: ENZALUTAMIDE
     Indication: Prostate cancer metastatic
     Dosage: UNK UNK, UNKNOWN FREQ.
     Route: 065
     Dates: start: 2015, end: 2016
  2. ENZALUTAMIDE [Suspect]
     Active Substance: ENZALUTAMIDE
     Indication: Metastases to bone
  3. XGEVA [Suspect]
     Active Substance: DENOSUMAB
     Indication: Prostate cancer metastatic
     Dosage: 120 MG, MONTHLY (FOR 11 MONTHS)
     Route: 065
     Dates: start: 2015, end: 2016
  4. XGEVA [Suspect]
     Active Substance: DENOSUMAB
     Indication: Metastases to bone
  5. CABAZITAXEL [Suspect]
     Active Substance: CABAZITAXEL
     Indication: Prostate cancer metastatic
     Dosage: UNK UNK, UNKNOWN FREQ.
     Route: 042
  6. CABAZITAXEL [Suspect]
     Active Substance: CABAZITAXEL
     Indication: Metastases to bone
  7. ABIRATERONE [Suspect]
     Active Substance: ABIRATERONE
     Indication: Prostate cancer metastatic
     Dosage: UNK UNK, UNKNOWN FREQ.
     Route: 065
  8. ABIRATERONE [Suspect]
     Active Substance: ABIRATERONE
     Indication: Metastases to bone
  9. PREDNISOLONE [Suspect]
     Active Substance: PREDNISOLONE
     Indication: Prostate cancer metastatic
     Dosage: UNK UNK, UNKNOWN FREQ.
     Route: 065
  10. PREDNISOLONE [Suspect]
     Active Substance: PREDNISOLONE
     Indication: Metastases to bone
  11. AMOXICILLIN\CLAVULANIC ACID [Concomitant]
     Active Substance: AMOXICILLIN\CLAVULANIC ACID
     Indication: Antibiotic prophylaxis
     Dosage: ONE-SHOT PROPHYLAXIS WITH 1000 MG AMOXICILLIN AND 250 MG CLAVULANIC ACID TABLETS, UNKNOWN FREQ.
     Route: 065
  12. AMOXICILLIN\CLAVULANIC ACID [Concomitant]
     Active Substance: AMOXICILLIN\CLAVULANIC ACID
     Dosage: 10 DAYS POSTOPERATIVELY WITH 500 MG AMOXICILLIN AND 125 MG CLAVULANIC ACID TABL, UNKNOWN FREQ.
     Route: 065
  13. AMOXICILLIN\CLAVULANIC ACID [Concomitant]
     Active Substance: AMOXICILLIN\CLAVULANIC ACID
     Dosage: 2 DAYS PREOPERATIVELY AND CONTINUED FOR 9 DAYS POSTOPERATIVELY WITH 500 MG AMOXICILL, UNKNOWN FREQ.
     Route: 065
  14. BENDROFLUMETHIAZIDE [Concomitant]
     Active Substance: BENDROFLUMETHIAZIDE
     Indication: Hypertension
     Dosage: UNK UNK, UNKNOWN FREQ.
     Route: 065
  15. METOPROLOL [Concomitant]
     Active Substance: METOPROLOL
     Indication: Hypertension
     Dosage: UNK UNK, UNKNOWN FREQ.
     Route: 065
  16. POTASSIUM CHLORIDE [Concomitant]
     Active Substance: POTASSIUM CHLORIDE
     Indication: Hypertension
     Dosage: UNK UNK, UNKNOWN FREQ.
     Route: 065
  17. EDOXABAN TOSYLATE [Concomitant]
     Active Substance: EDOXABAN TOSYLATE
     Indication: Atrial fibrillation
     Dosage: UNK UNK, UNKNOWN FREQ.
     Route: 065
  18. ASPIRIN [Concomitant]
     Active Substance: ASPIRIN
     Indication: Hypertension
     Dosage: UNK UNK, UNKNOWN FREQ.
     Route: 065
  19. ATORVASTATIN CALCIUM [Concomitant]
     Active Substance: ATORVASTATIN CALCIUM
     Indication: Hypertension
     Dosage: UNK UNK, UNKNOWN FREQ.
     Route: 065
  20. LOSARTAN [Concomitant]
     Active Substance: LOSARTAN
     Indication: Hypertension
     Dosage: UNK UNK, UNKNOWN FREQ.
     Route: 065
  21. CHLORHEXIDINE [Concomitant]
     Active Substance: CHLORHEXIDINE
     Indication: Anti-infective therapy
     Dosage: UNK UNK, UNKNOWN FREQ. (THE ORAL CAVITY WAS RINSED)
     Route: 048
  22. POTASSIUM CHLORIDE [Concomitant]
     Active Substance: POTASSIUM CHLORIDE
     Indication: Hypertension
     Dosage: UNK UNK, UNKNOWN FREQ.
     Route: 065
  23. FUROSEMIDE [Concomitant]
     Active Substance: FUROSEMIDE
     Indication: Hypertension
     Dosage: UNK UNK, UNKNOWN FREQ.
     Route: 065
  24. EPINEPHRINE\LIDOCAINE [Concomitant]
     Active Substance: EPINEPHRINE\LIDOCAINE
     Indication: Local anaesthesia
     Dosage: 10 MG/ML, 5 MICROG/ML, UNKNOWN FREQ.
     Route: 065
  25. METFORMIN [Concomitant]
     Active Substance: METFORMIN HYDROCHLORIDE
     Indication: Type 2 diabetes mellitus
     Dosage: UNK UNK, UNKNOWN FREQ.
     Route: 065
  26. CALCIUM [Concomitant]
     Active Substance: CALCIUM
     Indication: Hypertension
     Dosage: UNK UNK, UNKNOWN FREQ.
     Route: 065

REACTIONS (9)
  - Malignant neoplasm progression [Fatal]
  - Gingivitis [Unknown]
  - Peri-implantitis [Recovered/Resolved]
  - Osteonecrosis of jaw [Recovered/Resolved]
  - Tooth fracture [Recovered/Resolved]
  - Injury associated with device [Unknown]
  - Abscess [Unknown]
  - Atrial fibrillation [Unknown]
  - Drug ineffective [Unknown]
